FAERS Safety Report 15006429 (Version 2)
Quarter: 2018Q2

REPORT INFORMATION
  Report Type: Spontaneous
  Country: IT (occurrence: IT)
  Receive Date: 20180613
  Receipt Date: 20180613
  Transmission Date: 20180711
  Serious: Yes (Death)
  Sender: FDA-Public Use
  Company Number: PHHY2018IT017714

PATIENT
  Age: 63 Year
  Sex: Male

DRUGS (12)
  1. SIMVASTATIN. [Interacting]
     Active Substance: SIMVASTATIN
     Indication: PRODUCT USED FOR UNKNOWN INDICATION
     Route: 065
  2. INFLUENZA VIRUS VACCINE [Interacting]
     Active Substance: INFLUENZA VIRUS VACCINE
     Indication: PRODUCT USED FOR UNKNOWN INDICATION
     Route: 065
  3. GEMFIBROZIL. [Interacting]
     Active Substance: GEMFIBROZIL
     Indication: PRODUCT USED FOR UNKNOWN INDICATION
     Route: 065
  4. PARICALCITOL. [Suspect]
     Active Substance: PARICALCITOL
     Indication: PRODUCT USED FOR UNKNOWN INDICATION
     Route: 065
  5. CLONIDINE. [Concomitant]
     Active Substance: CLONIDINE
     Indication: PRODUCT USED FOR UNKNOWN INDICATION
     Route: 065
  6. INSULIN [Interacting]
     Active Substance: INSULIN NOS
     Indication: PRODUCT USED FOR UNKNOWN INDICATION
     Route: 065
  7. TORSEMIDE. [Suspect]
     Active Substance: TORSEMIDE
     Indication: PRODUCT USED FOR UNKNOWN INDICATION
     Route: 065
  8. QUINAPRIL. [Interacting]
     Active Substance: QUINAPRIL
     Indication: PRODUCT USED FOR UNKNOWN INDICATION
     Route: 065
  9. HYDROCHLOROTHIAZIDE. [Concomitant]
     Active Substance: HYDROCHLOROTHIAZIDE
     Indication: PRODUCT USED FOR UNKNOWN INDICATION
     Route: 065
  10. TAMSULOSIN [Concomitant]
     Active Substance: TAMSULOSIN
     Indication: PRODUCT USED FOR UNKNOWN INDICATION
     Route: 065
  11. ACETYLSALICYLIC ACID [Interacting]
     Active Substance: ASPIRIN
     Indication: PRODUCT USED FOR UNKNOWN INDICATION
     Route: 065
  12. VALSARTAN. [Interacting]
     Active Substance: VALSARTAN
     Indication: PRODUCT USED FOR UNKNOWN INDICATION
     Route: 065

REACTIONS (17)
  - Chromaturia [Fatal]
  - Mobility decreased [Fatal]
  - Paralysis [Fatal]
  - Hypotonia [Fatal]
  - Muscular weakness [Fatal]
  - Hypoaesthesia [Fatal]
  - Pneumonia [Fatal]
  - Guillain-Barre syndrome [Fatal]
  - Drug interaction [Fatal]
  - Cardiac failure [Fatal]
  - Cardiopulmonary failure [Fatal]
  - Arrhythmia [Fatal]
  - Nephropathy [Fatal]
  - Renal impairment [Fatal]
  - Rhabdomyolysis [Fatal]
  - Sepsis [Fatal]
  - Supraventricular tachycardia [Fatal]
